FAERS Safety Report 7671064-7 (Version None)
Quarter: 2011Q3

REPORT INFORMATION
  Report Type: 
  Country: None (occurrence: None)
  Receive Date: 20110809
  Receipt Date: 20110726
  Transmission Date: 20111222
  Serious: Yes (Other)
  Sender: FDA-Public Use
  Company Number: US-ASTRAZENECA-2010SE39824

PATIENT
  Age: 49 Year
  Sex: Female
  Weight: 71.7 kg

DRUGS (11)
  1. ESTRADIOL [Concomitant]
     Dosage: 2 MG 1/2 TABLET A DAY
     Dates: start: 20070209
  2. AVANDIA [Concomitant]
     Dosage: 4 MG 1/2 TABLET IN THE MORNING
     Dates: start: 20070209
  3. GLIPIZIDE [Concomitant]
     Dates: start: 20070209
  4. WELLBUTRIN XL [Concomitant]
  5. ZOLOFT [Concomitant]
     Dosage: 100 MG-150 MG
     Route: 048
     Dates: start: 20040915
  6. INDERAL [Concomitant]
  7. SEROQUEL [Suspect]
     Dosage: 50 MG-200 MG
     Route: 048
     Dates: start: 20040915
  8. AMITRIPTYLINE HCL [Concomitant]
     Dates: start: 20070209
  9. LAMICTAL [Concomitant]
     Dosage: 50 MG-200 MG
     Route: 048
     Dates: start: 20050915
  10. DEPO-MEDROL [Concomitant]
     Dates: start: 20080102
  11. LOVASTATIN [Concomitant]
     Dosage: 20 MG A HALF A TABLET DAILY
     Dates: start: 20070216

REACTIONS (7)
  - HYPERLIPIDAEMIA [None]
  - WEIGHT DECREASED [None]
  - NEUROPATHY PERIPHERAL [None]
  - PLANTAR FASCIITIS [None]
  - RESTLESS LEGS SYNDROME [None]
  - DIABETES MELLITUS INADEQUATE CONTROL [None]
  - MENOPAUSAL SYMPTOMS [None]
